FAERS Safety Report 8548902 (Version 3)
Quarter: 2012Q4

REPORT INFORMATION
  Report Type: 
  Country: JP (occurrence: JP)
  Receive Date: 20120507
  Receipt Date: 20121213
  Transmission Date: 20130627
  Serious: Yes (Hospitalization)
  Sender: FDA-Public Use
  Company Number: JP-ABBOTT-12P-087-0932492-00

PATIENT
  Age: 48 Year
  Sex: Male
  Weight: 64 kg

DRUGS (10)
  1. HUMIRA 40 MG/ 0.8 ML PRE-FILLED SYRINGE [Suspect]
     Indication: RHEUMATOID ARTHRITIS
     Route: 058
     Dates: start: 20110905, end: 20120416
  2. PREDNISOLONE [Concomitant]
     Indication: RHEUMATOID ARTHRITIS
     Route: 048
     Dates: start: 201104, end: 20120607
  3. PREDNISOLONE [Concomitant]
     Dates: start: 20120607, end: 20120702
  4. PREDNISOLONE [Concomitant]
     Dates: start: 20120702, end: 20120827
  5. PREDNISOLONE [Concomitant]
     Dates: start: 20120827, end: 20120923
  6. PREDNISOLONE [Concomitant]
     Dates: start: 20120924
  7. METHOTREXATE [Concomitant]
     Indication: RHEUMATOID ARTHRITIS
     Route: 048
     Dates: start: 201104
  8. OMEPRAZOLE [Concomitant]
     Indication: RECTAL ULCER
     Route: 048
     Dates: start: 201108
  9. REBAMIPIDE [Concomitant]
     Indication: RECTAL ULCER
     Route: 048
     Dates: start: 201108
  10. FOLIC ACID [Concomitant]
     Indication: PROPHYLAXIS
     Route: 048
     Dates: start: 201107

REACTIONS (4)
  - Pyrexia [Recovering/Resolving]
  - Arthralgia [Unknown]
  - Upper respiratory tract inflammation [Recovering/Resolving]
  - Rheumatoid arthritis [Unknown]
